FAERS Safety Report 20804843 (Version 6)
Quarter: 2023Q1

REPORT INFORMATION
  Report Type: Other
  Country: GB (occurrence: GB)
  Receive Date: 20220509
  Receipt Date: 20230316
  Transmission Date: 20230417
  Serious: Yes (Other)
  Sender: FDA-Public Use
  Company Number: GB-GLENMARK PHARMACEUTICALS-2022GMK072145

PATIENT

DRUGS (34)
  1. PRAMIPEXOLE DIHYDROCHLORIDE [Suspect]
     Active Substance: PRAMIPEXOLE DIHYDROCHLORIDE
     Indication: Product used for unknown indication
     Dosage: 157 MILLIGRAM, OD AT 5 AM
     Route: 065
  2. PRAMIPEXOLE DIHYDROCHLORIDE [Suspect]
     Active Substance: PRAMIPEXOLE DIHYDROCHLORIDE
     Dosage: 1 MILLIGRAM
     Route: 050
  3. PRAMIPEXOLE DIHYDROCHLORIDE [Suspect]
     Active Substance: PRAMIPEXOLE DIHYDROCHLORIDE
     Dosage: 157 MILLIGRAM, OD AT 5 AM
     Route: 050
  4. PRAMIPEXOLE DIHYDROCHLORIDE [Suspect]
     Active Substance: PRAMIPEXOLE DIHYDROCHLORIDE
     Dosage: UNK, REDUCED DOSAGES
     Route: 050
  5. CARBIDOPA\LEVODOPA [Suspect]
     Active Substance: CARBIDOPA\LEVODOPA
     Indication: Parkinson^s disease
     Dosage: ED 1.5MLS; MD - 6MLS. CD- 0.6MLS INCREASED TO 0.8MLS AND ED - 1.5MLS INCREASED TO 1.6MLS
     Route: 050
  6. CARBIDOPA\LEVODOPA [Suspect]
     Active Substance: CARBIDOPA\LEVODOPA
     Dosage: ED 1.5MLS
     Route: 050
  7. CARBIDOPA\LEVODOPA [Suspect]
     Active Substance: CARBIDOPA\LEVODOPA
     Dosage: CR 0.6MLS; ED 1.0MLS; MD 6.0MLS
     Route: 050
  8. CARBIDOPA\LEVODOPA [Suspect]
     Active Substance: CARBIDOPA\LEVODOPA
     Dosage: MD 6 CR 1.4 ED 1.8
     Route: 050
  9. CARBIDOPA\LEVODOPA [Suspect]
     Active Substance: CARBIDOPA\LEVODOPA
     Dosage: MD 6.0 CR 1.2 ED 1.8
     Route: 050
  10. CARBIDOPA\LEVODOPA [Suspect]
     Active Substance: CARBIDOPA\LEVODOPA
     Dosage: MD: 6.7, CR: 2.0, ED: 1.8
     Route: 050
  11. CARBIDOPA\LEVODOPA [Suspect]
     Active Substance: CARBIDOPA\LEVODOPA
     Dosage: MD: 6.5, CR: 1.8, ED: 1.8; DUODOPA 20MG/5MG
     Route: 050
  12. CARBIDOPA\LEVODOPA [Suspect]
     Active Substance: CARBIDOPA\LEVODOPA
     Dosage: UNK, MD: 6.5, CR: 1.8, ED: 1.8; DUODOPA 20MG/5MG
     Route: 050
  13. CARBIDOPA\LEVODOPA [Suspect]
     Active Substance: CARBIDOPA\LEVODOPA
     Dosage: UNK, MD: 6.7, CR: 2.0, ED: 1.8
     Route: 050
  14. CARBIDOPA\LEVODOPA [Suspect]
     Active Substance: CARBIDOPA\LEVODOPA
     Dosage: UNK, MD 6.0 CR 1.2 ED 1.8
     Route: 050
  15. CARBIDOPA\LEVODOPA [Suspect]
     Active Substance: CARBIDOPA\LEVODOPA
     Dosage: UNK, MD 6 CR 1.4 ED 1.8
     Route: 050
  16. CARBIDOPA\LEVODOPA [Suspect]
     Active Substance: CARBIDOPA\LEVODOPA
     Dosage: UNK, MD:6.7MLS, CR:2.0MLS/HR, ED:1.8ML, 20MGS/5MGS; ;
     Route: 050
  17. ENTACAPONE [Concomitant]
     Active Substance: ENTACAPONE
     Indication: Product used for unknown indication
     Dosage: 200 MILLIGRAM, BID
     Route: 065
  18. ENTACAPONE [Concomitant]
     Active Substance: ENTACAPONE
     Dosage: 400 MILLIGRAM, QD
     Route: 065
  19. ENTACAPONE [Concomitant]
     Active Substance: ENTACAPONE
     Dosage: 200 MILLIGRAM, BID
     Route: 050
  20. MOVICOL [Concomitant]
     Active Substance: POLYETHYLENE GLYCOL 3350\POTASSIUM CHLORIDE\SODIUM BICARBONATE\SODIUM CHLORIDE
     Indication: Product used for unknown indication
     Dosage: 1 DOSAGE FORM, QD
     Route: 065
  21. MOVICOL [Concomitant]
     Active Substance: POLYETHYLENE GLYCOL 3350\POTASSIUM CHLORIDE\SODIUM BICARBONATE\SODIUM CHLORIDE
     Dosage: UNK, 1 SACHET
     Route: 065
  22. MOVICOL [Concomitant]
     Active Substance: POLYETHYLENE GLYCOL 3350\POTASSIUM CHLORIDE\SODIUM BICARBONATE\SODIUM CHLORIDE
     Dosage: UNK, QD, 1 SACHET
     Route: 050
  23. RASAGILINE [Concomitant]
     Active Substance: RASAGILINE
     Indication: Product used for unknown indication
     Dosage: 1 MILLIGRAM, QD
     Route: 065
  24. SINEMET [Concomitant]
     Active Substance: CARBIDOPA\LEVODOPA
     Indication: Product used for unknown indication
     Dosage: SINEMET CR, 25MGS/100MGS AT 20.30 AND 22:00 ONCE AT NIGHT
     Route: 065
  25. SINEMET [Concomitant]
     Active Substance: CARBIDOPA\LEVODOPA
     Dosage: UNK
     Route: 048
  26. SINEMET [Concomitant]
     Active Substance: CARBIDOPA\LEVODOPA
     Dosage: UNK, 25MGS/100MGS AT 20.30 AND 22:00ONCE IN NIGHT; TIME INTERVAL
     Route: 050
  27. SINEMET [Concomitant]
     Active Substance: CARBIDOPA\LEVODOPA
     Dosage: UNK, HALF, 25/100MGCONTROLLED RELEASE
     Route: 050
  28. SINEMET [Concomitant]
     Active Substance: CARBIDOPA\LEVODOPA
     Dosage: UNK, 25MGS/100MGS AT 20.30 AND 22:00CONTROLLED RELEASE
     Route: 065
  29. SINEMET [Concomitant]
     Active Substance: CARBIDOPA\LEVODOPA
     Dosage: UNK, HALF, 25/100MGCONTROLLED RELEASE
     Route: 050
  30. SINEMET [Concomitant]
     Active Substance: CARBIDOPA\LEVODOPA
     Dosage: UNK, CONTROLLED RELEASE; ;
     Route: 050
  31. SINEMET [Concomitant]
     Active Substance: CARBIDOPA\LEVODOPA
     Dosage: UNK, 25MGS/100MGS AT 20.30 AND 22:00CONTROLLED RELEASE
     Route: 050
  32. SINEMET [Concomitant]
     Active Substance: CARBIDOPA\LEVODOPA
     Dosage: UNK, CONTROLLED RELEASE; ;
     Route: 050
  33. SINEMET [Concomitant]
     Active Substance: CARBIDOPA\LEVODOPA
     Dosage: UNK, 25MGS/100MGS AT 20.30 AND 22:00CONTROLLED RELEASE
     Route: 065
  34. SINEMET [Concomitant]
     Active Substance: CARBIDOPA\LEVODOPA
     Dosage: UNK, HALF, 25/100MGCONTROLLED RELEASE
     Route: 050

REACTIONS (33)
  - Haematochezia [Unknown]
  - Stoma site haemorrhage [Unknown]
  - Dystonia [Unknown]
  - Hallucination [Unknown]
  - Mobility decreased [Not Recovered/Not Resolved]
  - Depressed mood [Not Recovered/Not Resolved]
  - Peripheral swelling [Unknown]
  - Muscle rigidity [Not Recovered/Not Resolved]
  - Tremor [Not Recovered/Not Resolved]
  - Stoma site discharge [Unknown]
  - Stoma site infection [Unknown]
  - Stoma site pain [Unknown]
  - On and off phenomenon [Not Recovered/Not Resolved]
  - Freezing phenomenon [Not Recovered/Not Resolved]
  - Abdominal pain [Unknown]
  - Abdominal distension [Not Recovered/Not Resolved]
  - Muscle spasms [Unknown]
  - Wrong device used [Unknown]
  - Balance disorder [Unknown]
  - Erythema [Unknown]
  - Off label use [Unknown]
  - Gait disturbance [Unknown]
  - Constipation [Recovered/Resolved]
  - Poor quality sleep [Unknown]
  - Dizziness [Unknown]
  - Dyskinesia [Unknown]
  - Drug ineffective [Unknown]
  - Device expulsion [Unknown]
  - Device dislocation [Unknown]
  - Device issue [Unknown]
  - Device connection issue [Unknown]
  - Device physical property issue [Unknown]
  - Therapeutic product effect incomplete [Unknown]

NARRATIVE: CASE EVENT DATE: 20220101
